FAERS Safety Report 6312781-0 (Version None)
Quarter: 2009Q3

REPORT INFORMATION
  Report Type: 
  Country: None (occurrence: None)
  Receive Date: 20090817
  Receipt Date: 20090817
  Transmission Date: 20100115
  Serious: No
  Sender: FDA-Public Use
  Company Number: None

PATIENT
  Age: 31 Year
  Sex: Male
  Weight: 71.8951 kg

DRUGS (1)
  1. ZOLOFT [Suspect]
     Indication: DEPRESSION
     Dosage: 100 MG 1/2 TAB BEDTIME ORAL
     Route: 048
     Dates: start: 20090725, end: 20090811

REACTIONS (3)
  - DYSKINESIA [None]
  - SENSORY DISTURBANCE [None]
  - TREMOR [None]
